FAERS Safety Report 12126919 (Version 2)
Quarter: 2016Q2

REPORT INFORMATION
  Report Type: Report from Study
  Country: DE (occurrence: DE)
  Receive Date: 20160229
  Receipt Date: 20160429
  Transmission Date: 20160815
  Serious: Yes (Other)
  Sender: FDA-Public Use
  Company Number: DE-BRISTOL-MYERS SQUIBB COMPANY-BMS-2016-009107

PATIENT
  Age: 79 Year
  Sex: Male
  Weight: 78 kg

DRUGS (1)
  1. APIXABAN [Suspect]
     Active Substance: APIXABAN
     Indication: CEREBROVASCULAR ACCIDENT PROPHYLAXIS
     Dosage: 5 MG, BID
     Route: 048
     Dates: start: 20140126

REACTIONS (6)
  - Device function test [Unknown]
  - Syncope [Unknown]
  - Haemorrhage [Unknown]
  - Cerebral haemorrhage [Unknown]
  - Presyncope [Unknown]
  - Laceration [Unknown]

NARRATIVE: CASE EVENT DATE: 20151202
